FAERS Safety Report 4458999-3 (Version None)
Quarter: 2004Q3

REPORT INFORMATION
  Report Type: 
  Country: None (occurrence: None)
  Receive Date: 20040922
  Receipt Date: 20040922
  Transmission Date: 20050211
  Serious: No
  Sender: FDA-Public Use
  Company Number: None

PATIENT
  Age: 59 Year
  Sex: Female

DRUGS (1)
  1. OMNIPAQUE 240 [Suspect]
     Indication: CATHETERISATION CARDIAC
     Dosage: IV
     Route: 042

REACTIONS (6)
  - ATRIAL FIBRILLATION [None]
  - CONTRAST MEDIA REACTION [None]
  - HYPERSENSITIVITY [None]
  - HYPOTENSION [None]
  - RASH ERYTHEMATOUS [None]
  - RASH GENERALISED [None]
